FAERS Safety Report 8951719 (Version 1)
Quarter: 2012Q4

REPORT INFORMATION
  Report Type: 
  Country: US (occurrence: US)
  Receive Date: 20121204
  Receipt Date: 20121204
  Transmission Date: 20130627
  Serious: No
  Sender: FDA-Public Use
  Company Number: US-AMGEN-USASP2012063406

PATIENT
  Age: 44 Year
  Sex: Female

DRUGS (1)
  1. ENBREL [Suspect]
     Indication: RHEUMATOID ARTHRITIS
     Dosage: UNK UNK, 2 times/wk (uses as needed)
     Dates: start: 20021126

REACTIONS (2)
  - Rash [Not Recovered/Not Resolved]
  - Drug effect incomplete [Not Recovered/Not Resolved]
